FAERS Safety Report 8781583 (Version 1)
Quarter: 2012Q4

REPORT INFORMATION
  Report Type: 
  Country: GB (occurrence: GB)
  Receive Date: 20120913
  Receipt Date: 20120913
  Transmission Date: 20130627
  Serious: Yes (Other)
  Sender: FDA-Public Use
  Company Number: GB-009507513-1209GBR002573

PATIENT

DRUGS (2)
  1. NEXPLANON [Suspect]
     Dosage: UNK
     Dates: end: 20111215
  2. NEXPLANON [Suspect]
     Dosage: UNK
     Dates: start: 20111220

REACTIONS (4)
  - Abortion induced [Recovered/Resolved]
  - Device difficult to use [Recovered/Resolved]
  - Unintended pregnancy [Recovered/Resolved]
  - Device difficult to use [Recovered/Resolved]
